FAERS Safety Report 15414228 (Version 1)
Quarter: 2018Q3

REPORT INFORMATION
  Report Type: Spontaneous
  Country: GB (occurrence: GB)
  Receive Date: 20180921
  Receipt Date: 20180921
  Transmission Date: 20181010
  Serious: Yes (Death, Other)
  Sender: FDA-Public Use
  Company Number: GB-PFIZER INC-2018378377

PATIENT
  Age: 88 Year
  Sex: Male
  Weight: 58.5 kg

DRUGS (11)
  1. ZEROBASE [PARAFFIN, LIQUID] [Concomitant]
     Indication: DRY SKIN
     Dosage: 1 DF, UNK
     Dates: start: 20180717
  2. TRIMETHOPRIM. [Concomitant]
     Active Substance: TRIMETHOPRIM
     Dosage: 400 MG, 1X/DAY
     Dates: start: 20180724
  3. FRAGMIN [Suspect]
     Active Substance: DALTEPARIN SODIUM
     Indication: DEEP VEIN THROMBOSIS
     Dosage: 4 ML, 1X/DAY (10,000UNITS/4ML. IN THE MORNING.)
     Route: 058
     Dates: start: 20180521
  4. WATER. [Concomitant]
     Active Substance: WATER
     Dosage: 10 ML, (AS REQUIRED FOR PREPARATION/FLUSHING OF INJECTIONS)
     Dates: start: 20180731
  5. LAXIDO [Concomitant]
     Active Substance: POLYETHYLENE GLYCOL 3350\POTASSIUM CHLORIDE\SODIUM BICARBONATE\SODIUM CHLORIDE
     Indication: CONSTIPATION
     Dosage: TAKE 1?3 DAILY
     Route: 048
     Dates: start: 20180717
  6. DIHYDROCODEINE [Concomitant]
     Active Substance: DIHYDROCODEINE
     Indication: PAIN
     Dosage: 30 MG, EVERY 4?6 HOURS AS NECESSARY
     Dates: start: 20180717
  7. PARACETAMOL [Concomitant]
     Active Substance: ACETAMINOPHEN
     Dosage: 4000 MG, 1X/DAY (REDUCE TO ONE 4 TIMES DAILY IF WEIGHT DROPS BELOW 50KG.)
     Dates: start: 20180716
  8. PROCHLORPERAZINE. [Concomitant]
     Active Substance: PROCHLORPERAZINE
     Indication: NAUSEA
     Dosage: 5 MG, (2?3 TIMES DAILY.)
     Dates: start: 20180717
  9. MORPHINE [Concomitant]
     Active Substance: MORPHINE
     Indication: DYSPNOEA
     Dosage: 2MG HOURLY. 10MG/1ML.
     Route: 058
     Dates: start: 20180801
  10. POVIDONE?IODINE. [Concomitant]
     Active Substance: POVIDONE-IODINE
     Dosage: USE AS DIRECTED.
     Dates: start: 20180716
  11. SODIUM CHLORIDE. [Concomitant]
     Active Substance: SODIUM CHLORIDE
     Dosage: USE AS DIRECTED.
     Dates: start: 20180716

REACTIONS (3)
  - Stoma site haemorrhage [Not Recovered/Not Resolved]
  - Gastrointestinal haemorrhage [Fatal]
  - Haematemesis [Not Recovered/Not Resolved]

NARRATIVE: CASE EVENT DATE: 20180725
